FAERS Safety Report 16055655 (Version 1)
Quarter: 2019Q1

REPORT INFORMATION
  Report Type: Spontaneous
  Country: US (occurrence: US)
  Receive Date: 20190311
  Receipt Date: 20190311
  Transmission Date: 20190418
  Serious: No
  Sender: FDA-Public Use
  Company Number: US-009507513-1902USA011693

PATIENT
  Age: 73 Year
  Sex: Male

DRUGS (11)
  1. LORTADINE [Concomitant]
  2. FLOMAX [Concomitant]
     Active Substance: TAMSULOSIN HYDROCHLORIDE
  3. ATORVASTATIN [Concomitant]
     Active Substance: ATORVASTATIN
  4. PROSCAR [Concomitant]
     Active Substance: FINASTERIDE
  5. ZOMETA [Concomitant]
     Active Substance: ZOLEDRONIC ACID
  6. ELIQUIS [Concomitant]
     Active Substance: APIXABAN
  7. LIPITOR [Concomitant]
     Active Substance: ATORVASTATIN CALCIUM
  8. LISINOPRIL. [Concomitant]
     Active Substance: LISINOPRIL
  9. OMEGA-3 MARINE TRIGLYCERIDES [Concomitant]
     Active Substance: FISH OIL
  10. KEYTRUDA [Suspect]
     Active Substance: PEMBROLIZUMAB
     Indication: LUNG CARCINOMA CELL TYPE UNSPECIFIED STAGE IV
     Dosage: 200MG EVERY 3 WEEKS
     Route: 042
     Dates: start: 20170817
  11. VITAMINS (UNSPECIFIED) [Concomitant]
     Active Substance: VITAMINS

REACTIONS (1)
  - Sinus disorder [Recovered/Resolved]

NARRATIVE: CASE EVENT DATE: 201802
